FAERS Safety Report 11695283 (Version 2)
Quarter: 2015Q4

REPORT INFORMATION
  Report Type: Spontaneous
  Country: US (occurrence: US)
  Receive Date: 20151103
  Receipt Date: 20151112
  Transmission Date: 20160304
  Serious: Yes (Other)
  Sender: FDA-Public Use
  Company Number: US-INTERNATIONAL MEDICATION SYSTEMS, LIMITED-1043709

PATIENT
  Sex: Female

DRUGS (1)
  1. PHYTONADIONE. [Suspect]
     Active Substance: PHYTONADIONE

REACTIONS (2)
  - Injury associated with device [Unknown]
  - Exposure via contaminated device [None]

NARRATIVE: CASE EVENT DATE: 20151019
